FAERS Safety Report 5500844-9 (Version None)
Quarter: 2007Q4

REPORT INFORMATION
  Report Type: 
  Country: None (occurrence: None)
  Receive Date: 20071029
  Receipt Date: 20071018
  Transmission Date: 20080405
  Serious: Yes (Other)
  Sender: FDA-Public Use
  Company Number: B0492809A

PATIENT
  Age: 83 Year
  Sex: Female

DRUGS (7)
  1. AVANDIA [Suspect]
     Route: 048
     Dates: start: 20021015, end: 20041019
  2. CO-TENIDONE [Concomitant]
     Indication: HYPERTENSION
     Route: 048
  3. ENALAPRIL MALEATE [Concomitant]
     Indication: HYPERTENSION
     Route: 048
     Dates: start: 20020212
  4. GLICLAZIDE [Concomitant]
     Route: 048
     Dates: start: 20020212
  5. LOPERAMIDE HCL [Concomitant]
     Route: 048
  6. ASPIRIN [Concomitant]
     Dosage: 75MG PER DAY
     Route: 048
  7. QUININE SULFATE [Concomitant]
     Dosage: 300MG PER DAY
     Route: 048

REACTIONS (5)
  - CREPITATIONS [None]
  - DYSPNOEA [None]
  - JOINT SWELLING [None]
  - OEDEMA PERIPHERAL [None]
  - PULMONARY OEDEMA [None]
